FAERS Safety Report 4309018-0 (Version None)
Quarter: 2004Q1

REPORT INFORMATION
  Report Type: 
  Country: None (occurrence: None)
  Receive Date: 20040301
  Receipt Date: 20040217
  Transmission Date: 20041129
  Serious: Yes (Life-Threatening, Hospitalization)
  Sender: FDA-Public Use
  Company Number: 7449

PATIENT
  Age: 17 Year
  Sex: Female

DRUGS (6)
  1. DEXAMETHASONE [Suspect]
     Indication: ACUTE LYMPHOCYTIC LEUKAEMIA
     Dosage: 20 MG/M2
  2. VINCRISTINE [Suspect]
     Dosage: 1.5 MG/M2 OTH,
  3. METHOTREXATE [Suspect]
     Dosage: 5 G/M2 OTH,
  4. CYCLOPHOSPHAMIDE [Suspect]
     Dosage: 200 MG/M2 OTH,
  5. CYTARABINE [Suspect]
     Dosage: 2 G/M2 BID,
  6. ASPARAGINASE [Suspect]
     Dosage: NI

REACTIONS (10)
  - BONE MARROW DEPRESSION [None]
  - CANDIDIASIS [None]
  - DRUG CLEARANCE DECREASED [None]
  - GASTROINTESTINAL HAEMORRHAGE [None]
  - MENTAL STATUS CHANGES [None]
  - MUCOSAL INFLAMMATION [None]
  - MUSCLE ATROPHY [None]
  - PANCYTOPENIA [None]
  - PYREXIA [None]
  - SYSTEMIC CANDIDA [None]
